FAERS Safety Report 16206771 (Version 1)
Quarter: 2019Q2

REPORT INFORMATION
  Report Type: Spontaneous
  Country: RU (occurrence: RU)
  Receive Date: 20190417
  Receipt Date: 20190417
  Transmission Date: 20190711
  Serious: Yes (Other)
  Sender: FDA-Public Use
  Company Number: RU-PFIZER INC-2019159551

PATIENT
  Age: 59 Year
  Sex: Female

DRUGS (4)
  1. LETROZOLE. [Concomitant]
     Active Substance: LETROZOLE
     Dosage: 2.5 MG, 1X/DAY
     Dates: start: 201808
  2. DENOSUMAB [Concomitant]
     Active Substance: DENOSUMAB
     Dosage: 120 MG, 1 TIME IN 28 DAYS
     Dates: start: 201812
  3. PALBOCICLIB [Suspect]
     Active Substance: PALBOCICLIB
     Dosage: 125 MG, DAILY (21 DAYS, 1 WEEK BREAK)
     Dates: start: 201809
  4. ZOLEDRONIC ACID [Concomitant]
     Active Substance: ZOLEDRONIC ACID
     Dosage: 4 MG, UNK
     Dates: start: 20181106

REACTIONS (6)
  - Nephrolithiasis [Unknown]
  - Hepatomegaly [Unknown]
  - Neoplasm progression [Unknown]
  - Sinus tachycardia [Unknown]
  - Cerebral microangiopathy [Unknown]
  - Cardiac ventricular disorder [Unknown]

NARRATIVE: CASE EVENT DATE: 20181029
